FAERS Safety Report 9990584 (Version 1)
Quarter: 2014Q1

REPORT INFORMATION
  Report Type: Report from Study
  Country: US (occurrence: US)
  Receive Date: 20140310
  Receipt Date: 20140310
  Transmission Date: 20141002
  Serious: No
  Sender: FDA-Public Use
  Company Number: US-ABBVIE-13P-163-1135596-00

PATIENT
  Sex: Female

DRUGS (18)
  1. HUMIRA [Suspect]
     Indication: CROHN^S DISEASE
     Dates: start: 20130813, end: 20130813
  2. HUMIRA [Suspect]
  3. B12 [Concomitant]
     Indication: PRODUCT USED FOR UNKNOWN INDICATION
     Route: 050
  4. LOPERAMIDE [Concomitant]
     Indication: DIARRHOEA
  5. FLEXERIL [Concomitant]
     Indication: MUSCLE SPASMS
  6. KLOR-CON [Concomitant]
     Indication: PRODUCT USED FOR UNKNOWN INDICATION
  7. PANTOPRAZOLE [Concomitant]
     Indication: DYSPEPSIA
  8. GABAPENTIN [Concomitant]
     Indication: MUSCLE SPASMS
  9. LISINOPRIL [Concomitant]
     Indication: HYPERTENSION
  10. METOPROLOL [Concomitant]
     Indication: HYPERTENSION
  11. FOLIC ACID [Concomitant]
     Indication: PRODUCT USED FOR UNKNOWN INDICATION
  12. SUDAFED [Concomitant]
     Indication: SINUS DISORDER
  13. AMLODIPINE [Concomitant]
     Indication: HYPERTENSION
  14. PROZAC [Concomitant]
     Indication: PRODUCT USED FOR UNKNOWN INDICATION
  15. HYDROCODONE [Concomitant]
     Indication: PAIN
  16. VITAMIN D [Concomitant]
     Indication: VITAMIN D DECREASED
  17. OXYCODONE [Concomitant]
     Indication: PRODUCT USED FOR UNKNOWN INDICATION
     Dosage: EVERY PM
  18. CALCIUM [Concomitant]
     Indication: PRODUCT USED FOR UNKNOWN INDICATION

REACTIONS (1)
  - Injection site pain [Recovered/Resolved]
